APPROVED DRUG PRODUCT: MIFEPRISTONE
Active Ingredient: MIFEPRISTONE
Strength: 200MG
Dosage Form/Route: TABLET;ORAL
Application: A091178 | Product #001 | TE Code: AB
Applicant: GENBIOPRO INC
Approved: Apr 11, 2019 | RLD: No | RS: No | Type: RX